FAERS Safety Report 24676572 (Version 1)
Quarter: 2024Q4

REPORT INFORMATION
  Report Type: Spontaneous
  Country: CN (occurrence: CN)
  Receive Date: 20241128
  Receipt Date: 20241128
  Transmission Date: 20250114
  Serious: Yes (Other)
  Sender: MYLAN
  Company Number: CN-MYLANLABS-2024M1105331

PATIENT
  Age: 14 Year
  Sex: Female
  Weight: 40 kg

DRUGS (2)
  1. ZOLOFT [Suspect]
     Active Substance: SERTRALINE HYDROCHLORIDE
     Indication: Affective disorder
     Dosage: 50 MILLIGRAM, QD
     Route: 048
     Dates: start: 20241113, end: 20241113
  2. ESZOPICLONE [Concomitant]
     Active Substance: ESZOPICLONE
     Dosage: 3.0 MILLIGRAM, PM (3.0 MG QN)
     Route: 065

REACTIONS (4)
  - Dyspnoea [Recovered/Resolved]
  - Pallor [Recovered/Resolved]
  - Flushing [Recovered/Resolved]
  - Cyanosis [Recovered/Resolved]

NARRATIVE: CASE EVENT DATE: 20241113
